FAERS Safety Report 5383980-X (Version None)
Quarter: 2007Q3

REPORT INFORMATION
  Report Type: 
  Country: None (occurrence: None)
  Receive Date: 20070711
  Receipt Date: 20070629
  Transmission Date: 20080115
  Serious: Yes (Hospitalization)
  Sender: FDA-Public Use
  Company Number: HQWYE392122FEB07

PATIENT
  Sex: Male
  Weight: 108 kg

DRUGS (10)
  1. RAPAMUNE [Suspect]
     Indication: PROPHYLAXIS AGAINST TRANSPLANT REJECTION
     Route: 048
     Dates: start: 20060928
  2. PANTOZOL [Concomitant]
     Indication: PROPHYLAXIS AGAINST GASTROINTESTINAL ULCER
     Dosage: DOSE UNKNOWN, DAILY
     Route: 065
     Dates: start: 20060831
  3. KLEXANE [Concomitant]
     Indication: THROMBOSIS PROPHYLAXIS
     Dosage: DOSE UNKNOWN
     Route: 065
     Dates: start: 20070215, end: 20070221
  4. PROGRAF [Concomitant]
     Indication: PROPHYLAXIS AGAINST TRANSPLANT REJECTION
     Dosage: DOSE UNKNOWN
     Route: 048
     Dates: end: 20070215
  5. PROGRAF [Concomitant]
     Route: 048
     Dates: start: 20070219
  6. TORSEMIDE [Concomitant]
     Indication: OEDEMA
     Route: 065
     Dates: start: 20070220
  7. LORMETAZEPAM [Concomitant]
     Indication: INSOMNIA
     Dosage: DOSE UNKNOWN
     Route: 065
     Dates: start: 20070215, end: 20070218
  8. LUMINALETTE [Concomitant]
     Indication: INSOMNIA
     Dosage: DOSE UNKNOWN
     Route: 065
     Dates: start: 20070218, end: 20070218
  9. URSO FALK [Concomitant]
     Indication: BILE OUTPUT
     Dosage: DOSE UNKNOWN, TWICE DAILY
     Route: 065
     Dates: start: 20060831
  10. INSULIN [Concomitant]
     Indication: TYPE 1 DIABETES MELLITUS
     Dosage: 16 UNIT EVERY 1 DAY
     Route: 065

REACTIONS (1)
  - LIVER TRANSPLANT REJECTION [None]
